FAERS Safety Report 4900168-4 (Version None)
Quarter: 2006Q1

REPORT INFORMATION
  Report Type: 
  Country: None (occurrence: None)
  Receive Date: 20060203
  Receipt Date: 20050314
  Transmission Date: 20060701
  Serious: No
  Sender: FDA-Public Use
  Company Number: US-GLAXOSMITHKLINE-A0549638A

PATIENT
  Age: 52 Year
  Sex: Male

DRUGS (3)
  1. ARIXTRA [Suspect]
     Route: 058
     Dates: start: 20050309, end: 20050314
  2. ANCEF [Concomitant]
     Route: 065
  3. ZOFRAN [Concomitant]
     Route: 065

REACTIONS (1)
  - PYREXIA [None]
